FAERS Safety Report 9417171 (Version 1)
Quarter: 2013Q3

REPORT INFORMATION
  Report Type: Spontaneous
  Country: GB (occurrence: GB)
  Receive Date: 20130724
  Receipt Date: 20130724
  Transmission Date: 20140515
  Serious: Yes (Other)
  Sender: FDA-Public Use
  Company Number: GB-BAYER-2013-087759

PATIENT
  Sex: Male

DRUGS (1)
  1. GADOVIST 1.0 MMOL/ML SOLUTION FOR INJECTION [Suspect]
     Dosage: 10 ML, ONCE
     Dates: start: 20130625, end: 20130625

REACTIONS (4)
  - Unresponsive to stimuli [None]
  - Hypotension [None]
  - Malaise [None]
  - Hyponatraemia [None]
